FAERS Safety Report 10064378 (Version 1)
Quarter: 2014Q2

REPORT INFORMATION
  Report Type: Spontaneous
  Country: GB (occurrence: None)
  Receive Date: 20140404
  Receipt Date: 20140404
  Transmission Date: 20141212
  Serious: Yes (Other)
  Sender: FDA-Public Use
  Company Number: 2270257

PATIENT
  Sex: Male

DRUGS (2)
  1. DEFEROXAMINE [Suspect]
     Indication: SERUM FERRITIN INCREASED
  2. EPOETIN ZETA [Suspect]
     Indication: RED BLOOD CELL COUNT INCREASED
     Dosage: 30000 THEN 60000 AND 80000
     Dates: start: 201312

REACTIONS (1)
  - Haemoglobin decreased [None]
